FAERS Safety Report 4547167-2 (Version None)
Quarter: 2005Q1

REPORT INFORMATION
  Report Type: 
  Country: None (occurrence: None)
  Receive Date: 20050107
  Receipt Date: 20041229
  Transmission Date: 20050727
  Serious: Yes (Hospitalization)
  Sender: FDA-Public Use
  Company Number: US-ABBOTT-04P-163-0284943-00

PATIENT
  Sex: Male

DRUGS (1)
  1. BIAXIN [Suspect]
     Indication: UPPER RESPIRATORY TRACT INFECTION
     Route: 048
     Dates: start: 20031201

REACTIONS (4)
  - DERMATITIS EXFOLIATIVE [None]
  - HYPERSENSITIVITY [None]
  - MUCOUS MEMBRANE DISORDER [None]
  - ORAL MUCOSAL EXFOLIATION [None]
